FAERS Safety Report 19502255 (Version 1)
Quarter: 2021Q3

REPORT INFORMATION
  Report Type: Spontaneous
  Country: AE (occurrence: AE)
  Receive Date: 20210707
  Receipt Date: 20210707
  Transmission Date: 20211014
  Serious: Yes (Hospitalization)
  Sender: FDA-Public Use
  Company Number: NVSC2021AE145433

PATIENT
  Sex: Female

DRUGS (1)
  1. EXFORGE [Suspect]
     Active Substance: AMLODIPINE BESYLATE\VALSARTAN
     Indication: PRODUCT USED FOR UNKNOWN INDICATION
     Dosage: 320.1 MG
     Route: 048
     Dates: start: 20210624, end: 20210624

REACTIONS (3)
  - Accidental exposure to product [Unknown]
  - Hypotension [Unknown]
  - Incorrect dose administered [Unknown]
